FAERS Safety Report 15787475 (Version 2)
Quarter: 2019Q1

REPORT INFORMATION
  Report Type: Report from Study
  Country: HK (occurrence: HK)
  Receive Date: 20190103
  Receipt Date: 20190329
  Transmission Date: 20190417
  Serious: Yes (Death, Hospitalization)
  Sender: FDA-Public Use
  Company Number: HK-PFIZER INC-2019000043

PATIENT
  Age: 31 Year
  Sex: Male

DRUGS (4)
  1. COCAINE [Suspect]
     Active Substance: COCAINE
     Dosage: UNK
  2. METHAMPHETAMINE HCL [Suspect]
     Active Substance: METHAMPHETAMINE HYDROCHLORIDE
     Dosage: UNK
  3. KETAMINE HCL [Suspect]
     Active Substance: KETAMINE HYDROCHLORIDE
     Dosage: UNK
  4. PARA-METHOXYMETHAMPHETAMINE [Suspect]
     Active Substance: 4-METHOXYMETHAMPHETAMINE
     Dosage: UNK

REACTIONS (11)
  - Cardiac arrest [Fatal]
  - Tachycardia [Fatal]
  - Seizure [Fatal]
  - Renal failure [Fatal]
  - Toxicity to various agents [Fatal]
  - Depressed level of consciousness [Fatal]
  - Rhabdomyolysis [Fatal]
  - Drug abuse [Fatal]
  - Hypotension [Fatal]
  - Metabolic acidosis [Fatal]
  - Hyperthermia [Fatal]
